FAERS Safety Report 7418380-1 (Version None)
Quarter: 2011Q2

REPORT INFORMATION
  Report Type: 
  Country: None (occurrence: None)
  Receive Date: 20110415
  Receipt Date: 20110407
  Transmission Date: 20111010
  Serious: Yes (Hospitalization)
  Sender: FDA-Public Use
  Company Number: B0713090A

PATIENT
  Sex: Female

DRUGS (3)
  1. CONCERTA [Concomitant]
     Dosage: 36MG PER DAY
     Route: 048
  2. SEROQUEL [Concomitant]
     Dosage: 100MG PER DAY
     Route: 048
  3. LAMICTAL [Suspect]
     Dosage: 100MG PER DAY
     Route: 048
     Dates: start: 20110201

REACTIONS (8)
  - HEPATIC ENZYME ABNORMAL [None]
  - DRUG HYPERSENSITIVITY [None]
  - THROMBOCYTOPENIA [None]
  - DRUG RASH WITH EOSINOPHILIA AND SYSTEMIC SYMPTOMS [None]
  - PYREXIA [None]
  - COAGULOPATHY [None]
  - LYMPHADENOPATHY [None]
  - RASH MACULO-PAPULAR [None]
